FAERS Safety Report 24533261 (Version 2)
Quarter: 2024Q4

REPORT INFORMATION
  Report Type: Spontaneous
  Country: PL (occurrence: PL)
  Receive Date: 20241022
  Receipt Date: 20241203
  Transmission Date: 20250114
  Serious: Yes (Other)
  Sender: ABBVIE
  Company Number: PL-ABBVIE-5970400

PATIENT
  Sex: Female

DRUGS (4)
  1. ELAHERE [Suspect]
     Active Substance: MIRVETUXIMAB SORAVTANSINE-GYNX
     Indication: Ovarian cancer stage IV
     Dosage: STRENGTH: 5 MG/ML?DOSE 1
     Route: 042
  2. ELAHERE [Suspect]
     Active Substance: MIRVETUXIMAB SORAVTANSINE-GYNX
     Indication: Ovarian cancer stage IV
     Dosage: STRENGTH: 5 MG/ML?DOSE 2
     Route: 042
  3. ELAHERE [Suspect]
     Active Substance: MIRVETUXIMAB SORAVTANSINE-GYNX
     Indication: Ovarian cancer stage IV
     Dosage: STRENGTH: 5 MG/ML?DOSE 3
     Route: 042
  4. ELAHERE [Suspect]
     Active Substance: MIRVETUXIMAB SORAVTANSINE-GYNX
     Indication: Ovarian cancer stage IV
     Dosage: STRENGTH: 5 MG/ML?DOSE 4
     Route: 042

REACTIONS (12)
  - Metastases to urinary tract [Not Recovered/Not Resolved]
  - Pleural effusion [Unknown]
  - Pain [Unknown]
  - General physical health deterioration [Not Recovered/Not Resolved]
  - Metastases to peritoneum [Unknown]
  - Metastases to vagina [Not Recovered/Not Resolved]
  - Toxicity to various agents [Unknown]
  - Drug ineffective [Unknown]
  - Intra-abdominal fluid collection [Unknown]
  - Lymphadenopathy [Unknown]
  - Lung disorder [Unknown]
  - Medical device implantation [Unknown]

NARRATIVE: CASE EVENT DATE: 20240101
